FAERS Safety Report 4667595-4 (Version None)
Quarter: 2005Q2

REPORT INFORMATION
  Report Type: 
  Country: None (occurrence: None)
  Receive Date: 20050502
  Receipt Date: 20040602
  Transmission Date: 20051028
  Serious: Yes (Disabling)
  Sender: FDA-Public Use
  Company Number: 1623

PATIENT
  Age: 58 Year
  Sex: Female
  Weight: 66.2252 kg

DRUGS (12)
  1. ONTAK [Suspect]
     Indication: DERMATOMYOSITIS
     Dosage: 9 UG/KG D QD IV
     Route: 042
     Dates: start: 20040318, end: 20040101
  2. ONTAK [Suspect]
     Indication: PERIPHERAL T-CELL LYMPHOMA UNSPECIFIED
     Dosage: 9 UG/KG D QD IV
     Route: 042
     Dates: start: 20040318, end: 20040101
  3. ONTAK( 150 MG/ML FOR IV INFUSION 0 [Concomitant]
     Indication: DERMATOMYOSITIS
     Dosage: 12.5 UG/KG/D QD IV
     Route: 042
     Dates: start: 20040101
  4. ONTAK( 150 MG/ML FOR IV INFUSION 0 [Concomitant]
     Indication: PERIPHERAL T-CELL LYMPHOMA UNSPECIFIED
     Dosage: 12.5 UG/KG/D QD IV
     Route: 042
     Dates: start: 20040101
  5. ALLOPURINOL [Concomitant]
  6. CLONAZEPAM [Concomitant]
  7. FOLIC ACID [Concomitant]
  8. PREDNISONE TAB [Concomitant]
  9. RISEDRONATE SODIUM [Concomitant]
  10. WARFARIN [Concomitant]
  11. ACETAMINOPHEN [Concomitant]
  12. ESOMEPRAZOLE MAGNESIUM [Concomitant]

REACTIONS (1)
  - LIPODYSTROPHY ACQUIRED [None]
